FAERS Safety Report 5214782-2 (Version None)
Quarter: 2007Q1

REPORT INFORMATION
  Report Type: 
  Country: None (occurrence: None)
  Receive Date: 20070122
  Receipt Date: 20070122
  Transmission Date: 20070707
  Serious: Yes (Hospitalization)
  Sender: FDA-Public Use
  Company Number: None

PATIENT
  Age: 49 Year
  Sex: Male
  Weight: 129.2752 kg

DRUGS (1)
  1. AVELOX [Suspect]
     Indication: BRONCHITIS
     Dosage: 400 MG ONCE DAILY
     Dates: start: 20060103, end: 20060106

REACTIONS (7)
  - BACK PAIN [None]
  - INSOMNIA [None]
  - IRRITABILITY [None]
  - MUSCLE SPASMS [None]
  - NERVOUSNESS [None]
  - PANCREATITIS [None]
  - RESTLESSNESS [None]
